FAERS Safety Report 11278655 (Version 1)
Quarter: 2015Q3

REPORT INFORMATION
  Report Type: Spontaneous
  Country: FR (occurrence: FR)
  Receive Date: 20150717
  Receipt Date: 20150717
  Transmission Date: 20151125
  Serious: Yes (Hospitalization, Other)
  Sender: FDA-Public Use
  Company Number: FR-ROCHE-1609290

PATIENT
  Age: 85 Year
  Sex: Female

DRUGS (1)
  1. XOLAIR [Suspect]
     Active Substance: OMALIZUMAB
     Indication: ASPIRIN-EXACERBATED RESPIRATORY DISEASE
     Route: 058

REACTIONS (4)
  - Cerebrovascular accident [Unknown]
  - Atrial tachycardia [Recovered/Resolved]
  - Embolic stroke [Recovered/Resolved]
  - Transient ischaemic attack [Recovered/Resolved]

NARRATIVE: CASE EVENT DATE: 20150410
